FAERS Safety Report 16873857 (Version 2)
Quarter: 2019Q4

REPORT INFORMATION
  Report Type: Report from Study
  Country: None (occurrence: IE)
  Receive Date: 20191001
  Receipt Date: 20191105
  Transmission Date: 20200122
  Serious: Yes (Hospitalization)
  Sender: FDA-Public Use
  Company Number: IE-BIOVITRUM-2019IE3119

PATIENT
  Sex: Male

DRUGS (3)
  1. ORFADIN [Suspect]
     Active Substance: NITISINONE
     Indication: TYROSINAEMIA
     Dosage: 20 MG NOT 1.53 MG/KG (WEIGHT 13.1 KG)
     Dates: start: 20161125, end: 20170521
  2. ORFADIN [Suspect]
     Active Substance: NITISINONE
     Dosage: 30 MG BID 2.14 MG/KG (WEIGHT 14 KG)
  3. ORFADIN [Suspect]
     Active Substance: NITISINONE
     Dosage: 28 MG BID 2 MG/KG (WEIGHT 14 KG)

REACTIONS (1)
  - Vomiting [Recovered/Resolved]
